FAERS Safety Report 6377786-2 (Version None)
Quarter: 2009Q3

REPORT INFORMATION
  Report Type: 
  Country: None (occurrence: None)
  Receive Date: 20090921
  Receipt Date: 20090914
  Transmission Date: 20100115
  Serious: Yes (Hospitalization, Other)
  Sender: FDA-Public Use
  Company Number: 2008US003406

PATIENT
  Age: 44 Year
  Sex: Female
  Weight: 66.1 kg

DRUGS (6)
  1. PROTOPIC [Suspect]
     Indication: ECZEMA
     Dosage: D, TOPICAL
     Route: 061
     Dates: start: 20020101, end: 20051001
  2. ELIDEL [Suspect]
     Indication: ECZEMA
     Dosage: TOPICAL
     Route: 061
     Dates: end: 20050920
  3. TOPICORT [Concomitant]
  4. VENTOLIN [Concomitant]
  5. SINGULAIR [Concomitant]
  6. ADVAIR DISKUS 100/50 [Concomitant]

REACTIONS (2)
  - SEROMA [None]
  - T-CELL LYMPHOMA STAGE IV [None]
